FAERS Safety Report 7300694-7 (Version None)
Quarter: 2011Q1

REPORT INFORMATION
  Report Type: 
  Country: None (occurrence: None)
  Receive Date: 20110207
  Receipt Date: 20110131
  Transmission Date: 20110831
  Serious: Yes (Other)
  Sender: FDA-Public Use
  Company Number: DSA_44819_2011

PATIENT
  Age: 28 Year
  Sex: Female

DRUGS (3)
  1. WELLBUTRIN [Suspect]
     Indication: MAJOR DEPRESSION
     Dosage: (300 MG QD ORAL) ; (DF)
     Route: 048
     Dates: start: 20101204, end: 20101224
  2. WELLBUTRIN [Suspect]
     Indication: MAJOR DEPRESSION
     Dosage: (300 MG QD ORAL) ; (DF)
     Route: 048
     Dates: end: 20100312
  3. ALPRAZOLAM [Concomitant]

REACTIONS (5)
  - GRAND MAL CONVULSION [None]
  - AMNESIA [None]
  - POSTICTAL STATE [None]
  - HEAD INJURY [None]
  - LACERATION [None]
